FAERS Safety Report 7275659-4 (Version None)
Quarter: 2011Q1

REPORT INFORMATION
  Report Type: 
  Country: None (occurrence: None)
  Receive Date: 20110204
  Receipt Date: 20110126
  Transmission Date: 20110831
  Serious: Yes (Death)
  Sender: FDA-Public Use
  Company Number: JP-AMGEN-JPNCT2011002123

PATIENT
  Age: 61 Year
  Sex: Male
  Weight: 82 kg

DRUGS (8)
  1. PANITUMUMAB [Suspect]
     Indication: COLORECTAL CANCER
     Dosage: 6 MG, Q2WK
     Route: 041
     Dates: start: 20100903, end: 20101105
  2. OXYCONTIN [Concomitant]
     Dosage: UNK
     Route: 048
  3. ALDACTONE [Suspect]
     Dosage: UNK
     Route: 048
  4. OXINORM [Concomitant]
     Dosage: UNK
     Route: 048
  5. CALONAL [Concomitant]
     Dosage: UNK
     Route: 048
  6. LASIX [Concomitant]
     Dosage: UNK
     Route: 048
  7. PANITUMUMAB [Suspect]
     Dosage: 6 MG/KG, Q2WK
     Route: 041
     Dates: start: 20101210, end: 20101210
  8. NOVAMIN [Concomitant]
     Dosage: UNK
     Route: 048

REACTIONS (4)
  - HYPERKALAEMIA [None]
  - HYPOCALCAEMIA [None]
  - TROUSSEAU'S SYNDROME [None]
  - CEREBRAL INFARCTION [None]
